FAERS Safety Report 16900713 (Version 4)
Quarter: 2020Q1

REPORT INFORMATION
  Report Type: Spontaneous
  Country: US (occurrence: US)
  Receive Date: 20191009
  Receipt Date: 20200211
  Transmission Date: 20200409
  Serious: No
  Sender: FDA-Public Use
  Company Number: US-SA-2019SA272213

PATIENT
  Age: 55 Year
  Sex: Female

DRUGS (36)
  1. MAXALT [Concomitant]
     Active Substance: RIZATRIPTAN BENZOATE
  2. DICLOFENAC [Concomitant]
     Active Substance: DICLOFENAC
  3. DIHYDROERGOTAMIN [Concomitant]
  4. METAXALONE. [Concomitant]
     Active Substance: METAXALONE
  5. CLINDAMYCIN. [Concomitant]
     Active Substance: CLINDAMYCIN
  6. CRESTOR [Concomitant]
     Active Substance: ROSUVASTATIN CALCIUM
  7. POTASSIUM CITRATE. [Concomitant]
     Active Substance: POTASSIUM CITRATE
  8. XYZAL [Concomitant]
     Active Substance: LEVOCETIRIZINE DIHYDROCHLORIDE
  9. PREGABALIN. [Concomitant]
     Active Substance: PREGABALIN
  10. ACIPHEX [Concomitant]
     Active Substance: RABEPRAZOLE SODIUM
  11. EMGALITY [Concomitant]
     Active Substance: GALCANEZUMAB-GNLM
  12. LEVOTHYROXINE. [Concomitant]
     Active Substance: LEVOTHYROXINE
  13. OMEGA 3 [FISH OIL] [Concomitant]
     Active Substance: FISH OIL
  14. PROMETHAZINE [Concomitant]
     Active Substance: PROMETHAZINE HYDROCHLORIDE
  15. ADVIL [IBUPROFEN] [Concomitant]
     Active Substance: IBUPROFEN
  16. TRULICITY [Concomitant]
     Active Substance: DULAGLUTIDE
     Dosage: STRENGTH: 0.75/0.5
  17. LIVALO [Concomitant]
     Active Substance: PITAVASTATIN CALCIUM
  18. SIMVASTATIN. [Concomitant]
     Active Substance: SIMVASTATIN
  19. ZETIA [Concomitant]
     Active Substance: EZETIMIBE
  20. ECONAZOLE. [Concomitant]
     Active Substance: ECONAZOLE NITRATE
  21. DULOXETINE. [Concomitant]
     Active Substance: DULOXETINE
  22. MECLIZINE [Concomitant]
     Active Substance: MECLIZINE HYDROCHLORIDE
  23. MONTELUKAST [Concomitant]
     Active Substance: MONTELUKAST SODIUM
  24. PANTOPRAZOLE [Concomitant]
     Active Substance: PANTOPRAZOLE
  25. RIZATRIPTAN. [Concomitant]
     Active Substance: RIZATRIPTAN
  26. VALSARTAN. [Concomitant]
     Active Substance: VALSARTAN
  27. DUPIXENT [Suspect]
     Active Substance: DUPILUMAB
     Indication: DERMATITIS ATOPIC
     Dosage: 300 MG, QOW
     Route: 058
     Dates: start: 20190911
  28. ACYCLOVIR [ACICLOVIR SODIUM] [Concomitant]
     Active Substance: ACYCLOVIR
  29. AMITRIPTYLIN [Concomitant]
     Active Substance: AMITRIPTYLINE
  30. HYDROCHLOROTH [Concomitant]
     Active Substance: HYDROCHLOROTHIAZIDE
  31. LYRICA [Concomitant]
     Active Substance: PREGABALIN
  32. METFORMIN [Concomitant]
     Active Substance: METFORMIN HYDROCHLORIDE
  33. PAMELOR [Concomitant]
     Active Substance: NORTRIPTYLINE HYDROCHLORIDE
  34. RESTASIS [Concomitant]
     Active Substance: CYCLOSPORINE
  35. TROKENDI [Concomitant]
     Active Substance: TOPIRAMATE
  36. PROAIR [FLUTICASONE PROPIONATE] [Concomitant]
     Active Substance: FLUTICASONE PROPIONATE

REACTIONS (6)
  - Pruritus [Not Recovered/Not Resolved]
  - Rash [Not Recovered/Not Resolved]
  - Skin discolouration [Not Recovered/Not Resolved]
  - Dermatitis atopic [Not Recovered/Not Resolved]
  - Nasopharyngitis [Not Recovered/Not Resolved]
  - Acne [Not Recovered/Not Resolved]

NARRATIVE: CASE EVENT DATE: 2019
